FAERS Safety Report 8127287-6 (Version None)
Quarter: 2012Q1

REPORT INFORMATION
  Report Type: 
  Country: None (occurrence: None)
  Receive Date: 20120210
  Receipt Date: 20120207
  Transmission Date: 20120608
  Serious: Yes (Death, Hospitalization)
  Sender: FDA-Public Use
  Company Number: AT-BAYER-2012-009009

PATIENT
  Age: 57 Year
  Sex: Male
  Weight: 88 kg

DRUGS (15)
  1. TAZOBACTAM [Concomitant]
     Indication: PROPHYLAXIS
     Dosage: 4.5 G, TID
     Dates: start: 20111103, end: 20111109
  2. TROPISETRON [Concomitant]
     Indication: NAUSEA
     Dosage: 2.256 MG, BID
     Dates: start: 20111103, end: 20111105
  3. MOTILIUM [Concomitant]
     Dosage: UNK
     Dates: start: 20110101
  4. DOMPERIDON [Concomitant]
     Indication: NAUSEA
     Dosage: 10 MG, TID
     Dates: start: 20111107, end: 20111214
  5. HYDROMORPHONE HCL [Concomitant]
     Indication: PAIN
     Dosage: 4 MG, BID
     Dates: start: 20111001, end: 20120108
  6. PREDNISOLONE [Concomitant]
     Indication: DECREASED APPETITE
  7. ACYCLOVIR [Concomitant]
     Indication: ENCEPHALITIS
     Dosage: 400 MG, TID
     Dates: start: 20120110, end: 20120114
  8. AMOXICILLIN AND CLAVULANATE POTASSIUM [Concomitant]
     Indication: PROPHYLAXIS
     Dosage: 3 G, UNK
     Dates: start: 20111206, end: 20111214
  9. TAZOBACTAM [Concomitant]
     Dosage: 4.5 G, TID
     Dates: start: 20120108, end: 20120114
  10. NEXAVAR [Suspect]
     Indication: HEPATIC NEOPLASM MALIGNANT
     Dosage: 400 MG, BID
     Dates: start: 20111110, end: 20120109
  11. LACTULOSE [Concomitant]
     Indication: CONSTIPATION
     Dosage: UNK
     Dates: start: 20111001, end: 20120114
  12. TRIAZOLAM [Concomitant]
     Dosage: 0.25 ?G, UNK
  13. POLYETHYLENE GLYCOL [Concomitant]
     Indication: CONSTIPATION
     Dosage: UNK
     Dates: start: 20111001, end: 20120114
  14. SULBACTAM [Concomitant]
     Indication: PROPHYLAXIS
     Dosage: 3 G, TID
     Dates: start: 20111206, end: 20111214
  15. PREDNISOLONE [Concomitant]
     Indication: NAUSEA
     Dosage: 25 MG, UNK
     Dates: start: 20111104, end: 20111110

REACTIONS (10)
  - JAUNDICE [None]
  - HEPATIC NECROSIS [None]
  - BRADYKINESIA [None]
  - TRANSAMINASES INCREASED [None]
  - COAGULOPATHY [None]
  - THROMBOCYTOPENIA [None]
  - COMA HEPATIC [None]
  - CONFUSIONAL STATE [None]
  - GENERAL PHYSICAL HEALTH DETERIORATION [None]
  - HEPATIC FAILURE [None]
